FAERS Safety Report 8882753 (Version 3)
Quarter: 2013Q1

REPORT INFORMATION
  Report Type: Not Available
  Country: FR (occurrence: FR)
  Receive Date: 20121105
  Receipt Date: 20130207
  Transmission Date: 20140127
  Serious: Yes (Death, Hospitalization)
  Sender: FDA-Public Use
  Company Number: FR-NAPPMUNDI-GBR-2012-0011959

PATIENT
  Age: 86 Year
  Sex: Male
  Weight: 58 kg

DRUGS (8)
  1. OXYNORM [Suspect]
     Indication: PRODUCT USED FOR UNKNOWN INDICATION
     Dosage: 5 MG, DAILY
     Route: 048
     Dates: start: 20120914, end: 20121002
  2. CONTRAMAL [Suspect]
     Indication: PRODUCT USED FOR UNKNOWN INDICATION
     Dosage: 100 MG, DAILY
     Route: 048
     Dates: start: 20120929, end: 20121001
  3. ERYTHROPOIETIN [Concomitant]
     Indication: CHRONIC MYELOMONOCYTIC LEUKAEMIA
     Route: 065
  4. RAMIPRIL [Concomitant]
     Indication: HYPERTENSION
     Route: 065
  5. AMLODIPINE [Concomitant]
     Indication: HYPERTENSION
     Route: 065
  6. FUROSEMIDE [Concomitant]
     Indication: HYPERTENSION
     Route: 065
  7. AMILORIDE [Concomitant]
     Indication: HYPERTENSION
     Route: 065
  8. BISOPROLOL [Concomitant]
     Indication: HYPERTENSION
     Route: 065

REACTIONS (8)
  - Multi-organ failure [Fatal]
  - Altered state of consciousness [Recovered/Resolved]
  - Hepatocellular injury [Recovering/Resolving]
  - Renal failure acute [Recovering/Resolving]
  - Oliguria [Recovering/Resolving]
  - Oxygen saturation decreased [Recovered/Resolved]
  - Miosis [Recovered/Resolved]
  - Hypotension [Recovered/Resolved]
